FAERS Safety Report 9055011 (Version 3)
Quarter: 2013Q1

REPORT INFORMATION
  Report Type: Spontaneous
  Country: US (occurrence: US)
  Receive Date: 20130206
  Receipt Date: 20130318
  Transmission Date: 20140127
  Serious: Yes (Other)
  Sender: FDA-Public Use
  Company Number: US-PFIZER INC-2013043809

PATIENT
  Age: 79 Year
  Sex: Female

DRUGS (1)
  1. TOVIAZ [Suspect]
     Dosage: 8 MG, UNK

REACTIONS (5)
  - Diabetes mellitus [Unknown]
  - Syncope [Unknown]
  - Atrial fibrillation [Unknown]
  - Blood glucose decreased [Unknown]
  - Influenza [Unknown]
